FAERS Safety Report 4344875-3 (Version None)
Quarter: 2004Q2

REPORT INFORMATION
  Report Type: 
  Country: None (occurrence: None)
  Receive Date: 20040423
  Receipt Date: 20031208
  Transmission Date: 20050107
  Serious: No
  Sender: FDA-Public Use
  Company Number: US-GLAXOSMITHKLINE-A0442341A

PATIENT
  Age: 49 Year
  Sex: Male

DRUGS (4)
  1. ZOFRAN [Suspect]
     Indication: PROPHYLAXIS OF NAUSEA AND VOMITING
     Dosage: 4MG PER DAY
     Route: 042
     Dates: start: 20031207, end: 20031207
  2. MORPHINE [Suspect]
  3. DARVOCET [Concomitant]
  4. ANTIBIOTICS [Concomitant]

REACTIONS (2)
  - PAIN [None]
  - TREMOR [None]
